FAERS Safety Report 16883632 (Version 1)
Quarter: 2019Q4

REPORT INFORMATION
  Report Type: Spontaneous
  Country: CA (occurrence: CA)
  Receive Date: 20191004
  Receipt Date: 20191004
  Transmission Date: 20200122
  Serious: Yes (Other)
  Sender: FDA-Public Use
  Company Number: CA-TEVA-2019-CA-1115991

PATIENT
  Age: 63 Year
  Sex: Female

DRUGS (8)
  1. PALBOCICLIB [Concomitant]
     Active Substance: PALBOCICLIB
  2. AROMASIN [Concomitant]
     Active Substance: EXEMESTANE
  3. FASLODEX [Concomitant]
     Active Substance: FULVESTRANT
  4. TAMOXIFEN [Suspect]
     Active Substance: TAMOXIFEN
     Indication: PRODUCT USED FOR UNKNOWN INDICATION
     Route: 048
  5. IBRANCE [Concomitant]
     Active Substance: PALBOCICLIB
  6. ANASTROZOLE. [Suspect]
     Active Substance: ANASTROZOLE
     Indication: PRODUCT USED FOR UNKNOWN INDICATION
     Route: 048
  7. AROMASIN [Concomitant]
     Active Substance: EXEMESTANE
  8. ANASTROZOLE. [Suspect]
     Active Substance: ANASTROZOLE
     Route: 048

REACTIONS (5)
  - Malignant neoplasm progression [Unknown]
  - Arthralgia [Unknown]
  - Gastric disorder [Unknown]
  - Insomnia [Unknown]
  - Metastases to liver [Unknown]
